FAERS Safety Report 7339514-3 (Version None)
Quarter: 2011Q1

REPORT INFORMATION
  Report Type: 
  Country: None (occurrence: None)
  Receive Date: 20110308
  Receipt Date: 20110207
  Transmission Date: 20110831
  Serious: No
  Sender: FDA-Public Use
  Company Number: US-AMGEN-USASP2011006041

PATIENT
  Age: 61 Year
  Sex: Female

DRUGS (15)
  1. PROLIA [Suspect]
     Indication: OSTEOPOROSIS POSTMENOPAUSAL
     Dosage: 60 MG, Q6MO
     Dates: start: 20110131
  2. ZANAFLEX [Concomitant]
     Dosage: 1 MG, QD
  3. ATIVAN [Concomitant]
     Dosage: 1 MG, QD
  4. BIOTIN [Concomitant]
     Dosage: 1 MG, QD
  5. GLUCOSAMINE [Concomitant]
     Dosage: 1 MG, QD
  6. SEROQUEL [Concomitant]
     Dosage: 1 MG, QD
  7. ACCUPRIL [Concomitant]
     Dosage: 1 MG, QD
  8. ZOCOR [Concomitant]
     Dosage: 1 MG, QD
  9. FISH OIL [Concomitant]
     Dosage: 1 MG, QD
  10. VITAMIN C                          /00008001/ [Concomitant]
     Dosage: 1 MG, QD
  11. VICODIN [Concomitant]
  12. ASPIRIN [Concomitant]
     Dosage: 1 MG, QD
  13. PINDOLOL [Concomitant]
     Dosage: 1 MG, QD
  14. VICODIN [Concomitant]
     Dosage: UNK
  15. OXYCODONE [Concomitant]
     Dosage: 1 MG, Q6H

REACTIONS (3)
  - CYSTITIS [None]
  - MUSCLE SPASMS [None]
  - URINARY TRACT INFECTION [None]
